FAERS Safety Report 23318971 (Version 2)
Quarter: 2024Q2

REPORT INFORMATION
  Report Type: Spontaneous
  Country: DE (occurrence: DE)
  Receive Date: 20231220
  Receipt Date: 20240511
  Transmission Date: 20240716
  Serious: Yes (Hospitalization, Other)
  Sender: FDA-Public Use
  Company Number: DE-AstraZeneca-CH-00529961A

PATIENT
  Age: 60 Year
  Sex: Female

DRUGS (1)
  1. SOLIRIS [Suspect]
     Active Substance: ECULIZUMAB
     Indication: Neuromyelitis optica spectrum disorder
     Dosage: UNK UNK, Q2W
     Route: 042

REACTIONS (2)
  - Respiratory failure [Recovering/Resolving]
  - COVID-19 [Recovering/Resolving]
